FAERS Safety Report 4893660-2 (Version None)
Quarter: 2005Q4

REPORT INFORMATION
  Report Type: 
  Country: None (occurrence: None)
  Receive Date: 20051223
  Receipt Date: 20050920
  Transmission Date: 20060501
  Serious: No
  Sender: FDA-Public Use
  Company Number: 2005PV002332

PATIENT
  Age: 54 Year
  Sex: Female
  Weight: 90.7194 kg

DRUGS (3)
  1. SYMLIN [Suspect]
     Indication: DIABETES MELLITUS INSULIN-DEPENDENT
     Dosage: 60 MCG;TID;SC ; 15 MCG;SC
     Route: 058
     Dates: start: 20050101, end: 20050101
  2. SYMLIN [Suspect]
     Indication: DIABETES MELLITUS INSULIN-DEPENDENT
     Dosage: 60 MCG;TID;SC ; 15 MCG;SC
     Route: 058
     Dates: start: 20050101
  3. INSULIN PUMP [Concomitant]

REACTIONS (3)
  - ENERGY INCREASED [None]
  - NAUSEA [None]
  - WEIGHT DECREASED [None]
